FAERS Safety Report 14562722 (Version 1)
Quarter: 2018Q1

REPORT INFORMATION
  Report Type: Spontaneous
  Country: DE (occurrence: DE)
  Receive Date: 20180222
  Receipt Date: 20180222
  Transmission Date: 20180509
  Serious: Yes (Hospitalization)
  Sender: FDA-Public Use
  Company Number: DE-AKRON, INC.-2042452

PATIENT
  Sex: Female

DRUGS (1)
  1. ZIOPTAN [Suspect]
     Active Substance: TAFLUPROST
     Route: 047

REACTIONS (10)
  - Hair growth abnormal [Unknown]
  - Product quality issue [Unknown]
  - Eye pain [Unknown]
  - Weight decreased [Unknown]
  - Dyspepsia [Unknown]
  - Drug dose omission [Unknown]
  - Product label issue [Unknown]
  - Abdominal discomfort [Not Recovered/Not Resolved]
  - Alopecia [Unknown]
  - Eyelid margin crusting [Unknown]
